FAERS Safety Report 6137551-8 (Version None)
Quarter: 2009Q1

REPORT INFORMATION
  Report Type: 
  Country: None (occurrence: None)
  Receive Date: 20090327
  Receipt Date: 20090311
  Transmission Date: 20090719
  Serious: Yes (Hospitalization)
  Sender: FDA-Public Use
  Company Number: 000550

PATIENT
  Age: 78 Year
  Sex: Female

DRUGS (6)
  1. HYDROCHLOROTHIAZIDE [Suspect]
     Indication: HYPERTENSION
     Dosage: (25 MG, 25 MG DAILY)
  2. SIMVASTATIN [Concomitant]
  3. TRAZODONE [Concomitant]
  4. ALBUTEROL [Concomitant]
  5. BRIMONIDINE TARTRATE [Concomitant]
  6. LEVOBUNOLOL HCL [Concomitant]

REACTIONS (5)
  - DRUG HYPERSENSITIVITY [None]
  - DYSPNOEA [None]
  - FATIGUE [None]
  - PNEUMONIA [None]
  - SEPTIC SHOCK [None]
